FAERS Safety Report 9018350 (Version 1)
Quarter: 2013Q1

REPORT INFORMATION
  Report Type: Spontaneous
  Country: US (occurrence: None)
  Receive Date: 20130111
  Receipt Date: 20130111
  Transmission Date: 20140127
  Serious: Yes (Other)
  Sender: FDA-Public Use
  Company Number: None

PATIENT
  Age: 63 Year
  Sex: Female
  Weight: 83.92 kg

DRUGS (1)
  1. VALSARTAN / HCTZ [Suspect]
     Indication: HYPERTENSION
     Dosage: 1 TAB EVERY AM  PO
     Route: 048
     Dates: start: 20130101, end: 20130105

REACTIONS (12)
  - Pruritus [None]
  - Erythema [None]
  - Rash [None]
  - Somnolence [None]
  - Foreign body sensation in eyes [None]
  - Somnolence [None]
  - Pain [None]
  - Abdominal distension [None]
  - Headache [None]
  - Swelling [None]
  - Vision blurred [None]
  - Feeling abnormal [None]
